FAERS Safety Report 4587325-4 (Version None)
Quarter: 2005Q1

REPORT INFORMATION
  Report Type: 
  Country: None (occurrence: None)
  Receive Date: 20050215
  Receipt Date: 20050203
  Transmission Date: 20050727
  Serious: No
  Sender: FDA-Public Use
  Company Number: 2005AP01094

PATIENT

DRUGS (1)
  1. SEROQUEL [Suspect]

REACTIONS (4)
  - AKATHISIA [None]
  - HOMICIDAL IDEATION [None]
  - PHYSICAL ASSAULT [None]
  - SUICIDAL IDEATION [None]
